FAERS Safety Report 8168851-8 (Version None)
Quarter: 2012Q1

REPORT INFORMATION
  Report Type: 
  Country: None (occurrence: None)
  Receive Date: 20120227
  Receipt Date: 20120213
  Transmission Date: 20120608
  Serious: Yes (Death, Hospitalization, Other)
  Sender: FDA-Public Use
  Company Number: US-TYCO HEALTHCARE/MALLINCKRODT-T200901312

PATIENT
  Sex: Female
  Weight: 82.413 kg

DRUGS (12)
  1. NORVASC [Concomitant]
     Dosage: 10 MG, QD
  2. SYNTHROID [Concomitant]
     Dosage: 25 UG, QD
  3. ZEMPLAR [Concomitant]
     Dosage: 2 UG, WITH DIALYSIS
  4. OPTIMARK [Suspect]
     Indication: NUCLEAR MAGNETIC RESONANCE IMAGING
     Dosage: 20 ML, SINGLE
     Dates: start: 20050324, end: 20050324
  5. PROHANCE [Suspect]
     Indication: NUCLEAR MAGNETIC RESONANCE IMAGING
     Dosage: 17 ML, SINGLE
     Dates: start: 20040427, end: 20040427
  6. ATACAND [Concomitant]
     Dosage: 32 MG, QD
  7. NEPHROCAPS [Concomitant]
     Dosage: 1 TAB, QD
  8. EPOGEN [Concomitant]
     Dosage: 15000 UNITS WITH DIALYSIS
  9. RENAGEL [Concomitant]
     Dosage: 3200 MG, WITH EACH MEAL
  10. FERRLECIT                          /00345601/ [Concomitant]
     Dosage: 1 G, PER PROTOCOL
  11. INSULIN [Concomitant]
     Dosage: 3 UNITS, QD (AM)
  12. CATAPRES                           /00171101/ [Concomitant]
     Dosage: 0.3 MG, BID
     Route: 042

REACTIONS (18)
  - NEPHROGENIC SYSTEMIC FIBROSIS [None]
  - ELECTROCARDIOGRAM T WAVE ABNORMAL [None]
  - DIARRHOEA [None]
  - OFF LABEL USE [None]
  - ILEUS [None]
  - ELECTROCARDIOGRAM QT SHORTENED [None]
  - RENAL FAILURE [None]
  - QRS AXIS ABNORMAL [None]
  - ARTERIOVENOUS FISTULA SITE COMPLICATION [None]
  - ANGINA UNSTABLE [None]
  - HAEMATEMESIS [None]
  - HYPERLIPIDAEMIA [None]
  - PERIORBITAL CELLULITIS [None]
  - HYPERTENSIVE EMERGENCY [None]
  - ELECTROCARDIOGRAM ST SEGMENT DEPRESSION [None]
  - DYSPHAGIA [None]
  - VASCULAR GRAFT THROMBOSIS [None]
  - NAUSEA [None]
